FAERS Safety Report 6979623-1 (Version None)
Quarter: 2010Q3

REPORT INFORMATION
  Report Type: 
  Country: None (occurrence: None)
  Receive Date: 20100910
  Receipt Date: 20100910
  Transmission Date: 20110219
  Serious: Yes (Hospitalization)
  Sender: FDA-Public Use
  Company Number: None

PATIENT
  Age: 66 Year
  Sex: Male
  Weight: 90 kg

DRUGS (10)
  1. METFORMIN HCL [Suspect]
     Indication: DIABETES MELLITUS
     Dosage: 1 G BID PO
     Route: 048
  2. AVANDIA [Concomitant]
  3. GEMFIBROZIL [Concomitant]
  4. HALDOL [Concomitant]
  5. HALDOL DECANDATE [Concomitant]
  6. LISINOPRIL [Concomitant]
  7. METFORMIN [Concomitant]
  8. NOVOLIN R [Concomitant]
  9. SIMVASTATIN [Concomitant]
  10. ZETIA [Concomitant]

REACTIONS (3)
  - LACTIC ACIDOSIS [None]
  - PNEUMONIA [None]
  - RENAL IMPAIRMENT [None]
